FAERS Safety Report 5626733-7 (Version None)
Quarter: 2008Q1

REPORT INFORMATION
  Report Type: 
  Country: None (occurrence: None)
  Receive Date: 20080214
  Receipt Date: 20080204
  Transmission Date: 20080703
  Serious: Yes (Death, Life-Threatening)
  Sender: FDA-Public Use
  Company Number: NL-PFIZER INC-2008007390

PATIENT
  Age: 12 Year
  Sex: Female

DRUGS (2)
  1. ANIDULAFUNGIN [Suspect]
     Indication: CEREBRAL ASPERGILLOSIS
     Route: 042
     Dates: start: 20071220, end: 20080109
  2. AMPHOTERICIN B [Concomitant]

REACTIONS (1)
  - BRAIN INJURY [None]
